FAERS Safety Report 4305758-8 (Version None)
Quarter: 2004Q1

REPORT INFORMATION
  Report Type: 
  Country: None (occurrence: None)
  Receive Date: 20040225
  Receipt Date: 20040217
  Transmission Date: 20041129
  Serious: Yes (Hospitalization, Other)
  Sender: FDA-Public Use
  Company Number: FRWYE448605DEC03

PATIENT
  Age: 60 Year
  Sex: Female

DRUGS (3)
  1. RAPAMUNE [Suspect]
     Indication: PROPHYLAXIS AGAINST TRANSPLANT REJECTION
     Dosage: 6 MG DAILY AT EVENT ONSET, ORAL
     Route: 048
     Dates: start: 20031021, end: 20031201
  2. CELLCEPT [Suspect]
     Indication: PROPHYLAXIS AGAINST TRANSPLANT REJECTION
     Dosage: 500 MG 1X PER 1 DAY, ORAL
     Route: 048
     Dates: start: 20031021, end: 20031201
  3. PREDNISONE [Suspect]
     Indication: PROPHYLAXIS AGAINST TRANSPLANT REJECTION
     Dosage: 5 MG 1X PER 1 DAY, ORAL
     Route: 048
     Dates: start: 20020715

REACTIONS (5)
  - CONVULSION [None]
  - MALIGNANT HYPERTENSION [None]
  - PYELONEPHRITIS ACUTE [None]
  - RENAL FAILURE ACUTE [None]
  - TRANSPLANT FAILURE [None]
